FAERS Safety Report 5816605-7 (Version None)
Quarter: 2008Q3

REPORT INFORMATION
  Report Type: 
  Country: None (occurrence: None)
  Receive Date: 20080717
  Receipt Date: 20080312
  Transmission Date: 20090109
  Serious: Yes (Hospitalization)
  Sender: FDA-Public Use
  Company Number: 2008SP005065

PATIENT
  Age: 53 Year
  Sex: Male

DRUGS (2)
  1. INTEGRILIN [Suspect]
     Dosage: 180 MCG/KG;ONCE;INBO ; 180 MCG/KG;ONCE;INBO ; 2 MCG/KG;IV
     Route: 042
  2. LOVENOX [Suspect]
     Indication: DRUG USE FOR UNKNOWN INDICATION

REACTIONS (1)
  - THROMBOCYTOPENIA [None]
